FAERS Safety Report 9232006 (Version 1)
Quarter: 2013Q2

REPORT INFORMATION
  Report Type: Spontaneous
  Country: US (occurrence: US)
  Receive Date: 20130415
  Receipt Date: 20130415
  Transmission Date: 20140414
  Serious: No
  Sender: FDA-Public Use
  Company Number: US-PFIZER INC-2013115199

PATIENT
  Age: 76 Year
  Sex: Female

DRUGS (1)
  1. VFEND [Suspect]
     Indication: PULMONARY EOSINOPHILIA
     Dosage: 200 MG, 2X/DAY
     Dates: start: 20120802, end: 20130401

REACTIONS (1)
  - Rash [Unknown]
